FAERS Safety Report 8798203 (Version 1)
Quarter: 2012Q4

REPORT INFORMATION
  Report Type: Spontaneous
  Country: US (occurrence: None)
  Receive Date: 20120917
  Receipt Date: 20120917
  Transmission Date: 20130627
  Serious: Yes (Other)
  Sender: FDA-Public Use
  Company Number: None

PATIENT
  Age: 57 Year
  Sex: Female
  Weight: 70.31 kg

DRUGS (1)
  1. CETIRIZINE HCI [Suspect]
     Indication: MULTIPLE ALLERGIES
     Route: 048
     Dates: start: 20090101, end: 20120911

REACTIONS (3)
  - Pruritus generalised [None]
  - Urticaria [None]
  - Withdrawal syndrome [None]
